FAERS Safety Report 20218954 (Version 1)
Quarter: 2021Q4

REPORT INFORMATION
  Report Type: Spontaneous
  Country: US (occurrence: US)
  Receive Date: 20211222
  Receipt Date: 20211222
  Transmission Date: 20220303
  Serious: No
  Sender: FDA-Public Use
  Company Number: US-BioHaven Pharmaceuticals-2021BHV002908

PATIENT
  Age: 43 Year
  Sex: Female
  Weight: 90.800 kg

DRUGS (3)
  1. NURTEC ODT [Suspect]
     Active Substance: RIMEGEPANT SULFATE
     Indication: Migraine
     Route: 048
     Dates: start: 20211116
  2. LEVOTHYROXINE [Concomitant]
     Active Substance: LEVOTHYROXINE
     Indication: Product used for unknown indication
     Route: 065
  3. FINASTERIDE [Concomitant]
     Active Substance: FINASTERIDE
     Indication: Product used for unknown indication
     Route: 065

REACTIONS (3)
  - Flushing [Not Recovered/Not Resolved]
  - Rash [Recovering/Resolving]
  - Rash papular [Recovering/Resolving]
